FAERS Safety Report 5820614-1 (Version None)
Quarter: 2008Q3

REPORT INFORMATION
  Report Type: 
  Country: None (occurrence: None)
  Receive Date: 20080724
  Receipt Date: 20071205
  Transmission Date: 20090109
  Serious: No
  Sender: FDA-Public Use
  Company Number: A0697518A

PATIENT
  Age: 46 Year
  Sex: Male

DRUGS (3)
  1. AVANDIA [Suspect]
     Dosage: 4MG TWICE PER DAY
     Route: 048
     Dates: start: 20060101
  2. PREVACID [Concomitant]
  3. JANUVIA [Concomitant]

REACTIONS (1)
  - CHEST PAIN [None]
